FAERS Safety Report 4413275-X (Version None)
Quarter: 2004Q3

REPORT INFORMATION
  Report Type: 
  Country: None (occurrence: None)
  Receive Date: 20040802
  Receipt Date: 20040419
  Transmission Date: 20050211
  Serious: Yes (Life-Threatening, Hospitalization)
  Sender: FDA-Public Use
  Company Number: 200411642FR

PATIENT
  Age: 85 Year
  Sex: Female
  Weight: 75 kg

DRUGS (10)
  1. KETEK [Suspect]
     Indication: BRONCHITIS
     Route: 048
     Dates: start: 20040415, end: 20040419
  2. TOPLEXIL ^THERAPLIX^ [Suspect]
     Route: 048
     Dates: start: 20040415
  3. ARICEPT [Concomitant]
     Indication: DEMENTIA ALZHEIMER'S TYPE
  4. SILOMAT [Concomitant]
     Dates: start: 20040415
  5. HYPERICUM [Concomitant]
  6. EQUANIL [Concomitant]
     Route: 048
     Dates: start: 20031001, end: 20040418
  7. IMOVANE [Concomitant]
  8. PASSIFLORA [Concomitant]
  9. MELISSE [Concomitant]
  10. ZOPICLONE [Concomitant]
     Route: 048

REACTIONS (6)
  - ELECTROCARDIOGRAM QT PROLONGED [None]
  - FALL [None]
  - HEAD INJURY [None]
  - LOSS OF CONSCIOUSNESS [None]
  - NERVOUSNESS [None]
  - TORSADE DE POINTES [None]
